FAERS Safety Report 5797171-1 (Version None)
Quarter: 2008Q2

REPORT INFORMATION
  Report Type: 
  Country: None (occurrence: None)
  Receive Date: 20080627
  Receipt Date: 20080613
  Transmission Date: 20081010
  Serious: Yes (Hospitalization)
  Sender: FDA-Public Use
  Company Number: DSA_32036_2008

PATIENT
  Sex: Female

DRUGS (4)
  1. LORAZEPAM [Suspect]
     Dosage: (25 MG 1X NOT THE PRESCRIBED AMOUNT ORAL)
     Route: 048
     Dates: start: 20080612, end: 20080612
  2. IBUPROFEN [Suspect]
     Dosage: (12000 MG 1X NOT THE PRESCRIBED AMOUNT ORAL)
     Route: 048
     Dates: start: 20080612, end: 20080612
  3. ISOPHANE INSULIN [Suspect]
     Dosage: (NOT THE PRESCRIBED AMOUNT SUBCUTANEOUS)
     Route: 058
     Dates: start: 20080612, end: 20080612
  4. INSULIN NEUTRAL (NEUTRAL INSULIN - INSULIN) (NOT SPECIFIED) [Suspect]
     Dosage: (NOT THE PRESCRIBED AMOUNT SUBCUTANEOUS)
     Route: 058
     Dates: start: 20080612, end: 20080612

REACTIONS (5)
  - ABDOMINAL PAIN UPPER [None]
  - MULTIPLE DRUG OVERDOSE INTENTIONAL [None]
  - SOMNOLENCE [None]
  - SUICIDE ATTEMPT [None]
  - TACHYCARDIA [None]
